FAERS Safety Report 9303738 (Version 1)
Quarter: 2013Q2

REPORT INFORMATION
  Report Type: Spontaneous
  Country: CN (occurrence: CN)
  Receive Date: 20130522
  Receipt Date: 20130522
  Transmission Date: 20140414
  Serious: Yes (Other)
  Sender: FDA-Public Use
  Company Number: CN-ASTRAZENECA-2013SE35572

PATIENT
  Sex: Male
  Weight: 16 kg

DRUGS (8)
  1. BUDESONIDE [Suspect]
     Indication: BRONCHOPNEUMONIA
     Route: 055
     Dates: start: 20111221, end: 20120101
  2. TERBUTALINE SULFATE [Suspect]
     Indication: BRONCHOPNEUMONIA
     Route: 065
     Dates: start: 20111221, end: 20120101
  3. AZITHROMYCIN [Suspect]
     Indication: BRONCHOPNEUMONIA
     Route: 048
     Dates: start: 20111223, end: 20111225
  4. IPRATROPIUM BROMIDE [Suspect]
     Indication: BRONCHOPNEUMONIA
     Route: 065
     Dates: start: 20111221, end: 20120101
  5. CEFTAZIDIME [Suspect]
     Indication: INFECTION
     Route: 042
     Dates: start: 20111222, end: 20120101
  6. AMBROXOL HYDROCHLORIDE [Concomitant]
     Indication: INCREASED UPPER AIRWAY SECRETION
     Dates: start: 20111222
  7. AEROSOL [Concomitant]
     Indication: ASTHMA
     Dates: start: 20111222
  8. AEROSOL [Concomitant]
     Indication: MUSCLE SPASMS
     Dates: start: 20111222

REACTIONS (2)
  - Leukopenia [Recovering/Resolving]
  - Neutropenia [Recovering/Resolving]
